FAERS Safety Report 5286801-9 (Version None)
Quarter: 2007Q2

REPORT INFORMATION
  Report Type: 
  Country: None (occurrence: None)
  Receive Date: 20070404
  Receipt Date: 20070328
  Transmission Date: 20071010
  Serious: Yes (Life-Threatening)
  Sender: FDA-Public Use
  Company Number: HQWYE074129MAR07

PATIENT
  Age: 92 Year
  Sex: Female

DRUGS (11)
  1. INIPOMP [Suspect]
     Route: 048
     Dates: end: 20060920
  2. INIPOMP [Suspect]
     Route: 048
     Dates: start: 20070111, end: 20070115
  3. KARDEGIC [Suspect]
     Route: 048
     Dates: end: 20070124
  4. NEXIUM [Suspect]
     Route: 048
     Dates: start: 20060920, end: 20070104
  5. NEXIUM [Suspect]
     Route: 048
     Dates: start: 20070115, end: 20070124
  6. AUGMENTIN '125' [Concomitant]
     Indication: LUNG DISORDER
     Dosage: DF
     Route: 065
     Dates: start: 20070111, end: 20070101
  7. LASIX [Concomitant]
     Dosage: UNKNOWN
     Route: 065
  8. TRIATEC [Concomitant]
     Dosage: DF
     Route: 048
  9. AMLOR [Concomitant]
     Dosage: DF
     Route: 048
  10. CALCIPARINE [Suspect]
     Route: 058
     Dates: start: 20070101, end: 20070119
  11. LEVOTHYROXINE SODIUM [Concomitant]
     Dosage: DF
     Route: 048

REACTIONS (1)
  - AUTOIMMUNE THROMBOCYTOPENIA [None]
